FAERS Safety Report 4339958-8 (Version None)
Quarter: 2004Q2

REPORT INFORMATION
  Report Type: 
  Country: None (occurrence: None)
  Receive Date: 20040414
  Receipt Date: 20040401
  Transmission Date: 20050107
  Serious: Yes (Other)
  Sender: FDA-Public Use
  Company Number: 2004017753

PATIENT
  Sex: Male
  Weight: 8.6183 kg

DRUGS (2)
  1. ZYRTEC [Suspect]
     Indication: RHINORRHOEA
     Dosage: 1/4 TSP, ORAL
     Route: 048
     Dates: start: 20040101, end: 20040307
  2. ZITHROMAX [Suspect]
     Indication: OTITIS MEDIA ACUTE
     Dosage: 10 MG/KG (3 DAYS), ORAL
     Route: 048
     Dates: start: 20040308

REACTIONS (8)
  - BRONCHIOLITIS [None]
  - DRUG INEFFECTIVE [None]
  - EAR HAEMORRHAGE [None]
  - OTITIS MEDIA ACUTE [None]
  - PHARYNGOLARYNGEAL PAIN [None]
  - POST PROCEDURAL COMPLICATION [None]
  - RHINORRHOEA [None]
  - SINUSITIS [None]
